FAERS Safety Report 18524408 (Version 2)
Quarter: 2020Q4

REPORT INFORMATION
  Report Type: Spontaneous
  Country: US (occurrence: US)
  Receive Date: 20201120
  Receipt Date: 20201130
  Transmission Date: 20210114
  Serious: Yes (Other)
  Sender: FDA-Public Use
  Company Number: US-BEH-2020124944

PATIENT
  Sex: Female

DRUGS (1)
  1. HIZENTRA [Suspect]
     Active Substance: HUMAN IMMUNOGLOBULIN G
     Indication: HYPOGAMMAGLOBULINAEMIA
     Dosage: 12 GRAM, QOW
     Route: 058
     Dates: start: 20180809

REACTIONS (6)
  - Blood urine present [Unknown]
  - Impaired gastric emptying [Unknown]
  - Back pain [Unknown]
  - Dysuria [Unknown]
  - Pollakiuria [Unknown]
  - Kidney infection [Unknown]

NARRATIVE: CASE EVENT DATE: 2020
